FAERS Safety Report 20046812 (Version 3)
Quarter: 2021Q4

REPORT INFORMATION
  Report Type: Spontaneous
  Country: GB (occurrence: GB)
  Receive Date: 20211109
  Receipt Date: 20211130
  Transmission Date: 20220303
  Serious: No
  Sender: FDA-Public Use
  Company Number: GB-JNJFOC-20211046604

PATIENT
  Age: 30 Year
  Sex: Female

DRUGS (1)
  1. SIMPONI [Suspect]
     Active Substance: GOLIMUMAB
     Indication: Colitis ulcerative
     Dosage: STRENGTH: 100.00 MG/ML
     Route: 058

REACTIONS (2)
  - Device deployment issue [Unknown]
  - Product dose omission issue [Unknown]
